FAERS Safety Report 20155783 (Version 1)
Quarter: 2021Q4

REPORT INFORMATION
  Report Type: Spontaneous
  Country: US (occurrence: US)
  Receive Date: 20211207
  Receipt Date: 20211207
  Transmission Date: 20220303
  Serious: No
  Sender: FDA-Public Use
  Company Number: US-PFIZER INC-202101217439

PATIENT
  Age: 79 Year
  Sex: Male
  Weight: 88.45 kg

DRUGS (6)
  1. AMLODIPINE BESYLATE [Suspect]
     Active Substance: AMLODIPINE BESYLATE
     Indication: Blood pressure abnormal
     Dosage: UNK UNK, 1X/DAY (ONE IN THE MORNING)
  2. HYDROCHLOROTHIAZIDE [Suspect]
     Active Substance: HYDROCHLOROTHIAZIDE
     Indication: Blood pressure abnormal
     Dosage: 25 MG, 1X/DAY (TAKES ONE IN THE MORNING)
  3. PRAVASTATIN [Concomitant]
     Active Substance: PRAVASTATIN
     Indication: Blood pressure abnormal
     Dosage: 40 MG (ONCE AT BEDTIME)
  4. ELIQUIS [Concomitant]
     Active Substance: APIXABAN
     Dosage: 5 MG, 2X/DAY (ONCE IN THE MORNING AND ONCE AT NIGHT)
  5. LEVOTHYROXINE [Concomitant]
     Active Substance: LEVOTHYROXINE
     Indication: Cardiac disorder
     Dosage: 50 MG, 1X/DAY
  6. METOPROLOL TARTRATE [Concomitant]
     Active Substance: METOPROLOL TARTRATE
     Indication: Cardiac disorder
     Dosage: 50 MG, 2X/DAY (ONCE IN THE MORNING AND ONCE AT NIGHT)

REACTIONS (2)
  - Balance disorder [Unknown]
  - Dizziness [Unknown]

NARRATIVE: CASE EVENT DATE: 20210902
